FAERS Safety Report 8604301 (Version 4)
Quarter: 2013Q2

REPORT INFORMATION
  Report Type: Spontaneous
  Country: US (occurrence: US)
  Receive Date: 20120608
  Receipt Date: 20130415
  Transmission Date: 20140414
  Serious: Yes (Hospitalization, Other)
  Sender: FDA-Public Use
  Company Number: US-PFIZER INC-2012136826

PATIENT
  Age: 77 Year
  Sex: Female
  Weight: 66.21 kg

DRUGS (7)
  1. LYRICA [Suspect]
     Indication: HERPES ZOSTER
     Dosage: 150 MG, 3X/DAY
     Route: 048
     Dates: start: 20071210
  2. LYRICA [Suspect]
     Dosage: 150 MG, 2X/DAY
     Route: 048
  3. ATENOLOL [Concomitant]
     Indication: HYPERTENSION
     Dosage: 50 MG, UNK
  4. HYDROCHLOROTHIAZIDE [Concomitant]
     Indication: HYPERTENSION
     Dosage: 25 MG, UNK
  5. SIMVASTATIN [Concomitant]
     Indication: BLOOD CHOLESTEROL INCREASED
     Dosage: 10 MG, UNK
  6. LEVOTHYROXINE [Concomitant]
     Indication: THYROID DISORDER
     Dosage: 88 UG, UNK
  7. LEVOTHYROXINE [Concomitant]
     Dosage: 75 MG, UNK

REACTIONS (5)
  - Upper respiratory tract infection [Recovered/Resolved]
  - Influenza [Recovered/Resolved]
  - Cataract [Unknown]
  - Aphagia [Recovered/Resolved]
  - Upper respiratory tract infection [Recovered/Resolved]
